FAERS Safety Report 16431626 (Version 1)
Quarter: 2019Q3

REPORT INFORMATION
  Report Type: Spontaneous
  Country: US (occurrence: US)
  Receive Date: 20190613
  Receipt Date: 20190613
  Transmission Date: 20191004
  Serious: Yes (Other)
  Sender: FDA-Public Use
  Company Number: None

PATIENT
  Age: 79 Year
  Sex: Male
  Weight: 76.5 kg

DRUGS (2)
  1. PANZYGA [Suspect]
     Active Substance: HUMAN IMMUNOGLOBULIN G
     Indication: KIDNEY TRANSPLANT REJECTION
     Route: 042
     Dates: start: 20190611, end: 20190612
  2. PANZYGA [Suspect]
     Active Substance: HUMAN IMMUNOGLOBULIN G
     Indication: KIDNEY TRANSPLANT REJECTION
     Route: 042
     Dates: start: 20190611, end: 20190612

REACTIONS (2)
  - Rash pruritic [None]
  - Infusion related reaction [None]

NARRATIVE: CASE EVENT DATE: 20190613
